FAERS Safety Report 5000035-4 (Version None)
Quarter: 2006Q2

REPORT INFORMATION
  Report Type: 
  Country: None (occurrence: None)
  Receive Date: 20060501
  Receipt Date: 20060419
  Transmission Date: 20061013
  Serious: Yes (Hospitalization)
  Sender: FDA-Public Use
  Company Number: 2006053996

PATIENT
  Age: 38 Year
  Sex: Male

DRUGS (3)
  1. PREDNISOLONE [Suspect]
     Indication: LIVER TRANSPLANT
  2. TACROLIMUS (TACROLIMUS) [Suspect]
     Indication: LIVER TRANSPLANT
  3. AZATHIOPRINE [Suspect]
     Indication: LIVER TRANSPLANT

REACTIONS (4)
  - DRUG LEVEL BELOW THERAPEUTIC [None]
  - GRAND MAL CONVULSION [None]
  - LOSS OF CONSCIOUSNESS [None]
  - NEUROCYSTICERCOSIS [None]
